FAERS Safety Report 5937094-8 (Version None)
Quarter: 2008Q4

REPORT INFORMATION
  Report Type: 
  Country: None (occurrence: None)
  Receive Date: 20081031
  Receipt Date: 20081022
  Transmission Date: 20090506
  Serious: Yes (Other)
  Sender: FDA-Public Use
  Company Number: PHHY2008JP25797

PATIENT
  Age: 78 Year

DRUGS (7)
  1. LOCHOL [Suspect]
     Indication: HYPERLIPIDAEMIA
     Dosage: 30 MG/DAY
     Route: 048
     Dates: start: 20020204
  2. PROSNER [Suspect]
     Dosage: 20 MG/DAY
     Route: 048
     Dates: start: 20020204, end: 20081021
  3. ACTONEL [Concomitant]
     Dosage: 17.5 DF
     Route: 048
     Dates: start: 20061110
  4. LIPIDIL [Concomitant]
     Dosage: 100 DF
     Route: 048
     Dates: start: 20050401
  5. LUVOX [Concomitant]
     Dosage: 25 DF
     Route: 048
     Dates: start: 20060113
  6. BUP-4 [Concomitant]
     Dosage: 10 MG
     Dates: start: 20040127
  7. ASPIRIN [Concomitant]
     Dosage: 100 MG
     Dates: start: 20070702

REACTIONS (4)
  - CHEST X-RAY ABNORMAL [None]
  - COUGH [None]
  - INTERSTITIAL LUNG DISEASE [None]
  - PALPITATIONS [None]
